FAERS Safety Report 15824043 (Version 1)
Quarter: 2019Q1

REPORT INFORMATION
  Report Type: Spontaneous
  Country: None (occurrence: EC)
  Receive Date: 20190114
  Receipt Date: 20190114
  Transmission Date: 20190417
  Serious: Yes (Other)
  Sender: FDA-Public Use
  Company Number: EC-POPULATION COUNCIL, INC.-2061185

PATIENT
  Age: 26 Year

DRUGS (1)
  1. JADELLE [Suspect]
     Active Substance: LEVONORGESTREL
     Route: 059
     Dates: start: 201809

REACTIONS (2)
  - Drug ineffective [None]
  - Pregnancy with implant contraceptive [None]

NARRATIVE: CASE EVENT DATE: 2018
